FAERS Safety Report 8001026-1 (Version None)
Quarter: 2011Q4

REPORT INFORMATION
  Report Type: 
  Country: None (occurrence: None)
  Receive Date: 20111222
  Receipt Date: 20110613
  Transmission Date: 20120403
  Serious: No
  Sender: FDA-Public Use
  Company Number: US-GLAXOSMITHKLINE-A0931332A

PATIENT
  Age: 66 Year
  Sex: Female

DRUGS (3)
  1. VITAMIN C [Concomitant]
  2. ALLEGRA [Concomitant]
  3. FLONASE [Suspect]
     Indication: RHINITIS ALLERGIC
     Dosage: 2SPR PER DAY
     Route: 045
     Dates: start: 20060101, end: 20110523

REACTIONS (1)
  - NASAL ULCER [None]
